FAERS Safety Report 6884958-7 (Version None)
Quarter: 2010Q3

REPORT INFORMATION
  Report Type: 
  Country: None (occurrence: None)
  Receive Date: 20100729
  Receipt Date: 20071029
  Transmission Date: 20110219
  Serious: Yes (Other)
  Sender: FDA-Public Use
  Company Number: US-PFIZER INC-2007078871

PATIENT
  Sex: Male
  Weight: 90.9 kg

DRUGS (7)
  1. CELEBREX [Suspect]
     Indication: RHEUMATOID ARTHRITIS
     Dates: start: 20070820
  2. AMBIEN [Concomitant]
  3. LORTAB [Concomitant]
  4. PREDNISONE [Concomitant]
  5. GLUCOSAMINE [Concomitant]
  6. LOXIN [Concomitant]
  7. CHONDROITIN [Concomitant]

REACTIONS (1)
  - PAIN [None]
